FAERS Safety Report 7163973-2 (Version None)
Quarter: 2010Q4

REPORT INFORMATION
  Report Type: 
  Country: None (occurrence: None)
  Receive Date: 20101215
  Receipt Date: 20101203
  Transmission Date: 20110411
  Serious: Yes (Death, Hospitalization)
  Sender: FDA-Public Use
  Company Number: A0787762A

PATIENT
  Age: 46 Year
  Sex: Male
  Weight: 129.5 kg

DRUGS (5)
  1. AVANDIA [Suspect]
     Indication: DIABETES MELLITUS
     Dosage: 2MG PER DAY
     Route: 048
     Dates: start: 20000401, end: 20030901
  2. GLUCOTROL [Concomitant]
  3. ALLOPURINOL [Concomitant]
  4. GLUCOPHAGE [Concomitant]
  5. ATENOLOL [Concomitant]

REACTIONS (3)
  - CARDIAC ARREST [None]
  - DIABETES MELLITUS [None]
  - MYOCARDIAL ISCHAEMIA [None]
